FAERS Safety Report 8385664-2 (Version None)
Quarter: 2012Q2

REPORT INFORMATION
  Report Type: 
  Country: None (occurrence: None)
  Receive Date: 20120525
  Receipt Date: 20120521
  Transmission Date: 20120825
  Serious: No
  Sender: FDA-Public Use
  Company Number: US-PFIZER INC-2012123242

PATIENT
  Age: 62 Year
  Sex: Female

DRUGS (5)
  1. CALCIUM/MINERALS NOS [Concomitant]
     Dosage: UNK
  2. LYRICA [Interacting]
     Indication: FIBROMYALGIA
     Dosage: UNK
  3. ZOLOFT [Interacting]
     Indication: DEPRESSION
  4. ZOLOFT [Interacting]
     Indication: ANXIETY
     Dosage: UNK
  5. CALCIUM CARBONATE [Suspect]
     Dosage: UNK

REACTIONS (5)
  - STRESS [None]
  - PAIN [None]
  - RASH [None]
  - DISTURBANCE IN ATTENTION [None]
  - DRUG INTERACTION [None]
